FAERS Safety Report 7749459-2 (Version None)
Quarter: 2011Q3

REPORT INFORMATION
  Report Type: 
  Country: None (occurrence: None)
  Receive Date: 20110907
  Receipt Date: 20110822
  Transmission Date: 20111222
  Serious: Yes (Hospitalization)
  Sender: FDA-Public Use
  Company Number: DSA_47478_2011

PATIENT
  Age: 66 Year
  Sex: Male

DRUGS (7)
  1. ASPIRIN [Concomitant]
  2. ESCITALOPRAM [Concomitant]
  3. FOLIC ACID [Concomitant]
  4. ENALAPRIL MALEATE [Suspect]
     Indication: HYPERTENSION
     Dosage: ; 10 MG QD, ORAL
     Route: 048
     Dates: start: 20100201
  5. LIORESAL [Concomitant]
  6. BISOPROLOL FUMARATE [Concomitant]
  7. SIMVASTATIN [Concomitant]

REACTIONS (4)
  - SPEECH DISORDER [None]
  - PHARYNGEAL OEDEMA [None]
  - OEDEMA MOUTH [None]
  - DYSPHAGIA [None]
